FAERS Safety Report 20586013 (Version 1)
Quarter: 2022Q1

REPORT INFORMATION
  Report Type: Spontaneous
  Country: US (occurrence: US)
  Receive Date: 20220313
  Receipt Date: 20220313
  Transmission Date: 20220423
  Serious: No
  Sender: FDA-Public Use
  Company Number: US-BRISTOL-MYERS SQUIBB COMPANY-BMS-2022-038008

PATIENT
  Age: 80 Year
  Sex: Male

DRUGS (1)
  1. DASATINIB [Suspect]
     Active Substance: DASATINIB
     Indication: Colon cancer
     Dosage: 50 MILLIGRAM, QD
     Route: 048
     Dates: start: 20220221

REACTIONS (2)
  - Pain [Unknown]
  - Intentional product use issue [Unknown]
